FAERS Safety Report 4808420-8 (Version None)
Quarter: 2005Q4

REPORT INFORMATION
  Report Type: 
  Country: None (occurrence: None)
  Receive Date: 20051021
  Receipt Date: 20040221
  Transmission Date: 20060501
  Serious: No
  Sender: FDA-Public Use
  Company Number: JP_040202700

PATIENT
  Age: 58 Year
  Sex: Male

DRUGS (5)
  1. ZYPREXA [Suspect]
     Indication: ALCOHOLIC PSYCHOSIS
     Dosage: 5 MG DAY
     Dates: start: 20030725, end: 20040226
  2. CYANAMIDE (CALCIUM CARBIMIDE) [Concomitant]
  3. GRAMALIL (TIAPRIDE HYDROCHLORIDE) [Concomitant]
  4. DESYREL [Concomitant]
  5. SERMION (NICERGOLINE) [Concomitant]

REACTIONS (4)
  - HAEMATOCRIT DECREASED [None]
  - HAEMOGLOBIN DECREASED [None]
  - PALLOR [None]
  - RED BLOOD CELL COUNT DECREASED [None]
